FAERS Safety Report 23788301 (Version 1)
Quarter: 2024Q2

REPORT INFORMATION
  Report Type: Spontaneous
  Country: CN (occurrence: CN)
  Receive Date: 20240426
  Receipt Date: 20240426
  Transmission Date: 20240716
  Serious: Yes (Hospitalization)
  Sender: FDA-Public Use
  Company Number: CN-STRIDES ARCOLAB LIMITED-2024SP004734

PATIENT
  Age: 59 Year
  Sex: Male

DRUGS (3)
  1. DOXYCYCLINE [Suspect]
     Active Substance: DOXYCYCLINE
     Indication: Brucellosis
     Dosage: 200 MILLIGRAM, QD (PER DAY)
     Route: 065
     Dates: start: 20220623
  2. RIFAMPIN [Suspect]
     Active Substance: RIFAMPIN
     Indication: Brucellosis
     Dosage: 675 MILLIGRAM, QD (PER DAY)
     Route: 065
     Dates: start: 20220623
  3. GENTAMICIN [Suspect]
     Active Substance: GENTAMICIN
     Indication: Brucellosis
     Dosage: 320 MILLIGRAM, QD (PER DAY)
     Route: 065
     Dates: start: 20220623

REACTIONS (1)
  - Acute kidney injury [Recovered/Resolved]

NARRATIVE: CASE EVENT DATE: 20220704
